FAERS Safety Report 8346398-3 (Version None)
Quarter: 2012Q2

REPORT INFORMATION
  Report Type: 
  Country: None (occurrence: None)
  Receive Date: 20120509
  Receipt Date: 20120427
  Transmission Date: 20120825
  Serious: Yes (Death)
  Sender: FDA-Public Use
  Company Number: BR-BRISTOL-MYERS SQUIBB COMPANY-16574949

PATIENT
  Sex: Female

DRUGS (3)
  1. METFORMIN HCL [Suspect]
     Indication: DIABETES MELLITUS
     Route: 048
  2. FEMARA [Concomitant]
     Indication: BREAST CANCER
     Dates: start: 20120101
  3. NITRENDIPINE [Concomitant]
     Indication: HYPERTENSION

REACTIONS (1)
  - DEATH [None]
